FAERS Safety Report 25136294 (Version 1)
Quarter: 2025Q1

REPORT INFORMATION
  Report Type: Spontaneous
  Country: US (occurrence: US)
  Receive Date: 20250328
  Receipt Date: 20250328
  Transmission Date: 20250409
  Serious: Yes (Other)
  Sender: ADMA BIOLOGICS
  Company Number: ADMA2500189

PATIENT
  Age: 74 Year
  Sex: Female
  Weight: 65.76 kg

DRUGS (3)
  1. BIVIGAM [Suspect]
     Active Substance: HUMAN IMMUNOGLOBULIN G
     Indication: Chronic inflammatory demyelinating polyradiculoneuropathy
     Route: 042
  2. DIPHENHYDRAMINE [Concomitant]
     Active Substance: DIPHENHYDRAMINE
     Indication: Premedication
     Route: 048
     Dates: start: 20250315, end: 20250315
  3. ACETAMINOPHEN [Concomitant]
     Active Substance: ACETAMINOPHEN
     Indication: Premedication
     Route: 048
     Dates: start: 20250315, end: 20250315

REACTIONS (5)
  - Swelling face [Unknown]
  - Lip swelling [Unknown]
  - Pruritus [Recovered/Resolved]
  - Rash erythematous [Recovering/Resolving]
  - Off label use [Unknown]

NARRATIVE: CASE EVENT DATE: 20250315
